FAERS Safety Report 4732445-4 (Version None)
Quarter: 2005Q3

REPORT INFORMATION
  Report Type: 
  Country: None (occurrence: None)
  Receive Date: 20050801
  Receipt Date: 20050718
  Transmission Date: 20060218
  Serious: Yes (Hospitalization, Other)
  Sender: FDA-Public Use
  Company Number: HQWYE261719JUL05

PATIENT
  Age: 70 Year
  Sex: Male

DRUGS (8)
  1. MYLOTARG [Suspect]
     Indication: MYELOID LEUKAEMIA
     Dosage: A SINGLE 9 MG/M^2 DOSE, INTRAVENOUS; SEE IMAGE
     Route: 042
     Dates: start: 20050623, end: 20050623
  2. MYLOTARG [Suspect]
     Indication: MYELOID LEUKAEMIA
     Dosage: A SINGLE 9 MG/M^2 DOSE, INTRAVENOUS; SEE IMAGE
     Route: 042
     Dates: start: 20050707, end: 20050707
  3. TYLENOL [Concomitant]
  4. BENADRYL [Concomitant]
  5. DECADRON [Concomitant]
  6. ATIVAN [Concomitant]
  7. ZOFRAN [Concomitant]
  8. LEVAQUIN [Concomitant]

REACTIONS (5)
  - BLOOD PRESSURE INCREASED [None]
  - CHEST PAIN [None]
  - CHILLS [None]
  - HAEMOGLOBIN DECREASED [None]
  - PYREXIA [None]
